FAERS Safety Report 21287226 (Version 1)
Quarter: 2022Q3

REPORT INFORMATION
  Report Type: Spontaneous
  Country: AU (occurrence: AU)
  Receive Date: 20220902
  Receipt Date: 20220902
  Transmission Date: 20221027
  Serious: Yes (Other)
  Sender: FDA-Public Use
  Company Number: AU-PFIZER INC-PV202200054199

PATIENT
  Age: 51 Year
  Sex: Female

DRUGS (8)
  1. MYLOTARG [Suspect]
     Active Substance: GEMTUZUMAB OZOGAMICIN
     Indication: Acute myeloid leukaemia
     Dosage: 3 MG/M2, DAYS 1, 4 AND 7
     Dates: start: 202012
  2. MYLOTARG [Suspect]
     Active Substance: GEMTUZUMAB OZOGAMICIN
     Dosage: 3 MG/M2 INFUSED OVER 2 HOURS ON DAY 1
  3. MYLOTARG [Suspect]
     Active Substance: GEMTUZUMAB OZOGAMICIN
     Dosage: 3 MG/M2 INFUSED OVER 2 HOURS ON DAY 1
  4. CYTARABINE [Suspect]
     Active Substance: CYTARABINE
     Indication: Acute myeloid leukaemia
     Dosage: 7+3 (CYTARABINE + IDARUBICIN)
     Dates: start: 202012
  5. CYTARABINE [Suspect]
     Active Substance: CYTARABINE
     Dosage: 3G/M2 BD D1, 3, 5
  6. CYTARABINE [Suspect]
     Active Substance: CYTARABINE
     Dosage: 3G/M2 BD D1, 3, 5
  7. CYTARABINE [Suspect]
     Active Substance: CYTARABINE
     Dosage: 2.5 G/M2 BD D1, 3, 5 WITHOUT GEMTUZUMAB
  8. IDARUBICIN HYDROCHLORIDE [Suspect]
     Active Substance: IDARUBICIN HYDROCHLORIDE
     Indication: Acute myeloid leukaemia
     Dosage: 7+3 (CYTARABINE + IDARUBICIN)
     Dates: start: 202012

REACTIONS (6)
  - Febrile neutropenia [Recovered/Resolved]
  - Neutropenic colitis [Recovered/Resolved]
  - Klebsiella bacteraemia [Unknown]
  - Escherichia bacteraemia [Unknown]
  - Liver function test abnormal [Unknown]
  - Sciatica [Unknown]
